FAERS Safety Report 6239168-3 (Version None)
Quarter: 2009Q2

REPORT INFORMATION
  Report Type: 
  Country: None (occurrence: None)
  Receive Date: 20090622
  Receipt Date: 20090616
  Transmission Date: 20091009
  Serious: Yes (Hospitalization, Other)
  Sender: FDA-Public Use
  Company Number: GR-GENENTECH-283614

PATIENT
  Sex: Female

DRUGS (3)
  1. HERCEPTIN [Suspect]
     Indication: BREAST CANCER
     Dosage: UNK
     Route: 065
  2. AROMASIN [Suspect]
     Indication: BREAST CANCER
     Dosage: 25 MG, UNK
     Route: 048
  3. AROMASIN [Suspect]
     Dosage: 25 MG, UNK
     Route: 048

REACTIONS (1)
  - THROMBOCYTOPENIA [None]
